FAERS Safety Report 19583134 (Version 2)
Quarter: 2021Q3

REPORT INFORMATION
  Report Type: Spontaneous
  Country: PT (occurrence: PT)
  Receive Date: 20210719
  Receipt Date: 20210817
  Transmission Date: 20211014
  Serious: Yes (Hospitalization, Other)
  Sender: FDA-Public Use
  Company Number: PT-BAXTER-2021BAX020518

PATIENT
  Sex: Male

DRUGS (2)
  1. PARACETAMOL 10 MG/ML SOLUTION FOR INFUSION [Suspect]
     Active Substance: ACETAMINOPHEN
     Indication: BACK PAIN
     Route: 064
  2. DICLOFENAC [Suspect]
     Active Substance: DICLOFENAC
     Indication: BACK PAIN
     Route: 064

REACTIONS (8)
  - Foetal exposure during pregnancy [Recovered/Resolved]
  - Atrial septal defect [Recovered/Resolved]
  - Pulmonary valve disease [Recovered/Resolved]
  - Pulmonary hypertension [Recovered/Resolved]
  - Right-to-left cardiac shunt [Recovered/Resolved]
  - Ventricular hypertrophy [Recovered/Resolved]
  - Ductus arteriosus premature closure [Recovered/Resolved]
  - Tricuspid valve incompetence [Recovered/Resolved]
